FAERS Safety Report 9135911 (Version 1)
Quarter: 2013Q1

REPORT INFORMATION
  Report Type: Spontaneous
  Country: US (occurrence: US)
  Receive Date: 20130304
  Receipt Date: 20130304
  Transmission Date: 20140127
  Serious: No
  Sender: FDA-Public Use
  Company Number: US-ABBOTT-12P-163-0924716-00

PATIENT
  Age: 35 None
  Sex: Male
  Weight: 96.25 kg

DRUGS (11)
  1. ANDROGEL 1% [Suspect]
     Indication: BLOOD TESTOSTERONE DECREASED
     Route: 061
     Dates: start: 2008, end: 2009
  2. ANDROGEL 1% [Suspect]
     Route: 061
     Dates: start: 2009
  3. ANDROGEL 1% [Suspect]
     Route: 061
  4. ANDROGEL 1.62% [Suspect]
     Indication: BLOOD TESTOSTERONE DECREASED
     Dosage: 8 PUMPS DAILY
     Route: 061
  5. MOTRIN [Suspect]
     Indication: NASOPHARYNGITIS
     Dates: start: 201112, end: 201201
  6. ANTIBIOTICS [Suspect]
     Indication: NASOPHARYNGITIS
     Dates: start: 201112, end: 201201
  7. ELAVIL [Concomitant]
     Indication: PAIN
  8. ELAVIL [Concomitant]
     Indication: ANXIETY
  9. ELAVIL [Concomitant]
     Indication: DEPRESSION
  10. CYMBALTA [Concomitant]
     Indication: DEPRESSION
  11. SYNTHROID [Concomitant]
     Indication: HYPOTHYROIDISM

REACTIONS (3)
  - Nasopharyngitis [Recovered/Resolved]
  - Blood testosterone abnormal [Not Recovered/Not Resolved]
  - Blood testosterone increased [Recovered/Resolved]
